FAERS Safety Report 19693007 (Version 1)
Quarter: 2021Q3

REPORT INFORMATION
  Report Type: Spontaneous
  Country: DE (occurrence: DE)
  Receive Date: 20210813
  Receipt Date: 20210813
  Transmission Date: 20211014
  Serious: Yes (Hospitalization)
  Sender: FDA-Public Use
  Company Number: DE-ETHYPHARM-2021001189

PATIENT
  Age: 59 Year
  Sex: Male
  Weight: 80 kg

DRUGS (1)
  1. BUPRENORPHINE. [Suspect]
     Active Substance: BUPRENORPHINE
     Route: 048

REACTIONS (3)
  - Weight decreased [Unknown]
  - Abdominal pain upper [Unknown]
  - Chromaturia [Unknown]
